FAERS Safety Report 4426325-1 (Version None)
Quarter: 2004Q3

REPORT INFORMATION
  Report Type: 
  Country: None (occurrence: None)
  Receive Date: 20040810
  Receipt Date: 20040726
  Transmission Date: 20050211
  Serious: Yes (Hospitalization)
  Sender: FDA-Public Use
  Company Number: A01200403374

PATIENT
  Age: 90 Year
  Sex: Male

DRUGS (9)
  1. CLOPIDOGREL - TABLET - 75 MG [Suspect]
     Indication: CEREBROVASCULAR ACCIDENT
     Dosage: 75 MG OD
     Route: 048
     Dates: end: 20040702
  2. ACETYLSALICYLIC ACID [Suspect]
     Indication: CEREBROVASCULAR ACCIDENT
     Dosage: 75 MG OD
     Route: 048
     Dates: end: 20040702
  3. ROFECOXIB [Suspect]
     Indication: OSTEOARTHRITIS
     Dosage: 12.5 MG OD
     Route: 048
     Dates: end: 20040702
  4. AMITRIPTYLINE HCL [Concomitant]
  5. SENNA [Concomitant]
  6. LACTULOSE [Concomitant]
  7. ALFUZOSIN [Concomitant]
  8. BENDROFLUAZIDE [Concomitant]
  9. TRAMADOL HCL [Concomitant]

REACTIONS (4)
  - GASTRODUODENAL ULCER [None]
  - HAEMATEMESIS [None]
  - MELAENA [None]
  - OESOPHAGITIS [None]
